FAERS Safety Report 20974001 (Version 1)
Quarter: 2022Q2

REPORT INFORMATION
  Report Type: Spontaneous
  Country: US (occurrence: US)
  Receive Date: 20220617
  Receipt Date: 20220617
  Transmission Date: 20220720
  Serious: Yes (Hospitalization, Other)
  Sender: FDA-Public Use
  Company Number: US-009507513-1406USA012108

PATIENT
  Sex: Female
  Weight: 68.934 kg

DRUGS (2)
  1. FOSAMAX [Suspect]
     Active Substance: ALENDRONATE SODIUM
     Indication: Osteoporosis
     Dosage: 70 MG, UNK
     Route: 048
     Dates: start: 20050325, end: 20120706
  2. ALENDRONATE SODIUM [Suspect]
     Active Substance: ALENDRONATE SODIUM
     Dosage: 70 MG, UNK
     Route: 048
     Dates: start: 20080409, end: 20120611

REACTIONS (16)
  - Femur fracture [Unknown]
  - Intramedullary rod insertion [Unknown]
  - Hip arthroplasty [Unknown]
  - Anaemia [Unknown]
  - Hip arthroplasty [Recovering/Resolving]
  - Atrial fibrillation [Unknown]
  - Hyperthyroidism [Unknown]
  - Low turnover osteopathy [Unknown]
  - Catheterisation cardiac [Unknown]
  - Medical device removal [Unknown]
  - Osteoarthritis [Unknown]
  - Hypertension [Unknown]
  - Cataract [Unknown]
  - Wrist surgery [Unknown]
  - Appendicectomy [Unknown]
  - Knee arthroplasty [Unknown]

NARRATIVE: CASE EVENT DATE: 20120101
